FAERS Safety Report 5878252-0 (Version None)
Quarter: 2008Q3

REPORT INFORMATION
  Report Type: 
  Country: None (occurrence: None)
  Receive Date: 20080911
  Receipt Date: 20080729
  Transmission Date: 20090109
  Serious: Yes (Hospitalization, Other)
  Sender: FDA-Public Use
  Company Number: US-BAXTER-2008BH009514

PATIENT
  Age: 2 Month
  Sex: Male

DRUGS (9)
  1. ADVATE [Suspect]
     Indication: HAEMOPHILIA
     Dosage: DOSE UNIT:UNKNOWN
     Route: 042
     Dates: start: 20080101
  2. ADVATE [Suspect]
     Indication: FACTOR VIII DEFICIENCY
     Dosage: DOSE UNIT:UNKNOWN
     Route: 042
     Dates: start: 20080101
  3. ADVATE [Suspect]
     Indication: SUBDURAL HAEMATOMA
     Dosage: DOSE UNIT:UNKNOWN
     Route: 042
     Dates: start: 20080101
  4. ADVATE [Suspect]
     Route: 042
     Dates: start: 20080603, end: 20080622
  5. ADVATE [Suspect]
     Route: 042
     Dates: start: 20080603, end: 20080622
  6. ADVATE [Suspect]
     Route: 042
     Dates: start: 20080603, end: 20080622
  7. PREVACID [Concomitant]
     Indication: GASTROOESOPHAGEAL REFLUX DISEASE
     Route: 048
  8. POLYVISOL [Concomitant]
     Indication: PROPHYLAXIS
     Route: 048
  9. BACTRIM [Concomitant]
     Indication: URINARY TRACT INFECTION
     Route: 048

REACTIONS (2)
  - FACTOR VIII INHIBITION [None]
  - SUBDURAL HAEMATOMA [None]
